FAERS Safety Report 16679608 (Version 1)
Quarter: 2019Q3

REPORT INFORMATION
  Report Type: Spontaneous
  Country: GB (occurrence: US)
  Receive Date: 20190807
  Receipt Date: 20190807
  Transmission Date: 20191004
  Serious: Yes (Death, Hospitalization, Other)
  Sender: FDA-Public Use
  Company Number: GB-MYLANLABS-2019M1073478

PATIENT
  Age: 66 Year
  Sex: Female

DRUGS (7)
  1. METFORMIN [Suspect]
     Active Substance: METFORMIN HYDROCHLORIDE
     Indication: PRODUCT USED FOR UNKNOWN INDICATION
     Dosage: UNK
     Route: 065
  2. LISINOPRIL + HIDROCLOROTIAZIDA [Concomitant]
     Active Substance: HYDROCHLOROTHIAZIDE\LISINOPRIL
     Dosage: UNK
  3. RISPERDAL [Concomitant]
     Active Substance: RISPERIDONE
     Dosage: UNK
  4. GABAPENTIN. [Concomitant]
     Active Substance: GABAPENTIN
     Dosage: UNK
  5. FLUVASTATIN [Concomitant]
     Active Substance: FLUVASTATIN SODIUM
     Dosage: UNK
  6. AMLODIPINE [Concomitant]
     Active Substance: AMLODIPINE BESYLATE
     Dosage: UNK
  7. METOPROLOL. [Concomitant]
     Active Substance: METOPROLOL
     Dosage: UNK

REACTIONS (18)
  - Haemoglobin decreased [Fatal]
  - Depressed level of consciousness [Fatal]
  - Drug level increased [Fatal]
  - Blood bicarbonate decreased [Fatal]
  - Blood pH decreased [Fatal]
  - PCO2 decreased [Fatal]
  - Hypothermia [Fatal]
  - Hypotension [Fatal]
  - Cardiac arrest [Fatal]
  - Bradycardia [Fatal]
  - Lactic acidosis [Fatal]
  - Unresponsive to stimuli [Fatal]
  - Pulse abnormal [Fatal]
  - Shock [Fatal]
  - Blood glucose decreased [Recovered/Resolved]
  - Drug abuse [Unknown]
  - Oxygen saturation decreased [Fatal]
  - Blood potassium increased [Fatal]
